FAERS Safety Report 17904961 (Version 1)
Quarter: 2020Q2

REPORT INFORMATION
  Report Type: Spontaneous
  Country: US (occurrence: US)
  Receive Date: 20200616
  Receipt Date: 20200616
  Transmission Date: 20200714
  Serious: No
  Sender: FDA-Public Use
  Company Number: None

PATIENT
  Sex: Male
  Weight: 79.8 kg

DRUGS (2)
  1. 5-FLUOROURACIL (5-FU) [Suspect]
     Active Substance: FLUOROURACIL
  2. CISPLATIN. [Suspect]
     Active Substance: CISPLATIN

REACTIONS (4)
  - Dehydration [None]
  - Platelet count decreased [None]
  - Mucosal inflammation [None]
  - White blood cell count decreased [None]

NARRATIVE: CASE EVENT DATE: 20200605
